FAERS Safety Report 6184556-7 (Version None)
Quarter: 2009Q2

REPORT INFORMATION
  Report Type: 
  Country: None (occurrence: None)
  Receive Date: 20090508
  Receipt Date: 20090428
  Transmission Date: 20091009
  Serious: Yes (Hospitalization, Other)
  Sender: FDA-Public Use
  Company Number: US-MERCK-0601USA02830

PATIENT
  Age: 72 Year
  Sex: Male
  Weight: 82 kg

DRUGS (11)
  1. FOSAMAX [Suspect]
     Indication: OSTEOPOROSIS
     Route: 048
     Dates: end: 20010101
  2. FOSAMAX [Suspect]
     Route: 048
     Dates: start: 20010101
  3. FOSAMAX [Suspect]
     Indication: OSTEOPENIA
     Route: 048
     Dates: end: 20010101
  4. FOSAMAX [Suspect]
     Route: 048
     Dates: start: 20010101
  5. CRESTOR [Concomitant]
     Route: 065
  6. [THERAPY UNSPECIFIED] [Concomitant]
     Route: 065
  7. ZOMETA [Suspect]
     Route: 065
     Dates: start: 20031101
  8. ASPIRIN [Concomitant]
     Route: 065
  9. VIOXX [Concomitant]
     Route: 065
  10. METOPROLOL TARTRATE [Concomitant]
     Route: 065
  11. DIOVAN HCT [Concomitant]
     Route: 065

REACTIONS (31)
  - ARRHYTHMIA [None]
  - ARTHROPATHY [None]
  - ATRIAL FIBRILLATION [None]
  - ATRIAL FLUTTER [None]
  - BLOOD CREATININE INCREASED [None]
  - BUNDLE BRANCH BLOCK [None]
  - CHOLELITHIASIS [None]
  - CORONARY ARTERY DISEASE [None]
  - DEAFNESS [None]
  - DYSURIA [None]
  - EPIDERMOLYSIS [None]
  - FEMORAL ARTERY ANEURYSM [None]
  - GASTRIC ULCER [None]
  - GASTROOESOPHAGEAL REFLUX DISEASE [None]
  - HEPATIC CYST [None]
  - HIP FRACTURE [None]
  - HYPERLIPIDAEMIA [None]
  - HYPOTENSION [None]
  - HYPOTHYROIDISM [None]
  - HYPOXIA [None]
  - INSOMNIA [None]
  - OBESITY [None]
  - OSTEOMYELITIS [None]
  - OSTEONECROSIS [None]
  - RENAL ATROPHY [None]
  - RENAL CYST [None]
  - RENAL PAIN [None]
  - RIB FRACTURE [None]
  - SLEEP DISORDER [None]
  - ULCER [None]
  - VENTRICULAR EXTRASYSTOLES [None]
